FAERS Safety Report 12805370 (Version 1)
Quarter: 2016Q4

REPORT INFORMATION
  Report Type: Spontaneous
  Country: DK (occurrence: DK)
  Receive Date: 20161004
  Receipt Date: 20161004
  Transmission Date: 20170207
  Serious: Yes (Hospitalization, Disabling)
  Sender: FDA-Public Use
  Company Number: DK-ACCORD-044483

PATIENT
  Age: 54 Year
  Sex: Female

DRUGS (5)
  1. CISPLATIN ACCORD [Suspect]
     Active Substance: CISPLATIN
     Indication: HODGKIN^S DISEASE MIXED CELLULARITY RECURRENT
     Dates: start: 201505
  2. ADCETRIS [Suspect]
     Active Substance: BRENTUXIMAB VEDOTIN
     Indication: HODGKIN^S DISEASE MIXED CELLULARITY RECURRENT
     Dates: start: 201505
  3. BRENTUXIMAB VEDOTIN [Concomitant]
     Active Substance: BRENTUXIMAB VEDOTIN
     Indication: HODGKIN^S DISEASE MIXED CELLULARITY RECURRENT
     Dates: start: 201505
  4. DEXAMETHASON GLOSTRUP APOTEK [Suspect]
     Active Substance: DEXAMETHASONE
     Indication: HODGKIN^S DISEASE MIXED CELLULARITY RECURRENT
     Dates: start: 201505
  5. CYTARABIN FRESENIUS KABI [Suspect]
     Active Substance: CYTARABINE
     Indication: HODGKIN^S DISEASE MIXED CELLULARITY RECURRENT
     Dates: start: 201505

REACTIONS (15)
  - Fatigue [Not Recovered/Not Resolved]
  - Hypoaesthesia [Unknown]
  - Hepatic function abnormal [Unknown]
  - Off label use [Unknown]
  - Neuropathy peripheral [Not Recovered/Not Resolved]
  - Activities of daily living impaired [Not Recovered/Not Resolved]
  - Vision blurred [Unknown]
  - Dry skin [Unknown]
  - Impaired driving ability [Not Recovered/Not Resolved]
  - Blood potassium decreased [Unknown]
  - Skin exfoliation [Unknown]
  - Sensory disturbance [Unknown]
  - Areflexia [Unknown]
  - Memory impairment [Not Recovered/Not Resolved]
  - Disturbance in attention [Not Recovered/Not Resolved]

NARRATIVE: CASE EVENT DATE: 2015
